FAERS Safety Report 20018907 (Version 1)
Quarter: 2021Q4

REPORT INFORMATION
  Report Type: Spontaneous
  Country: US (occurrence: US)
  Receive Date: 20211101
  Receipt Date: 20211101
  Transmission Date: 20220303
  Serious: No
  Sender: FDA-Public Use
  Company Number: US-TEVA-2021-US-1968270

PATIENT
  Age: 71 Year
  Sex: Male
  Weight: 86.18 kg

DRUGS (1)
  1. TAMSULOSIN [Suspect]
     Active Substance: TAMSULOSIN
     Route: 048

REACTIONS (1)
  - Therapeutic product effect variable [Unknown]
